FAERS Safety Report 19732015 (Version 1)
Quarter: 2021Q3

REPORT INFORMATION
  Report Type: Report from Study
  Country: ZA (occurrence: ZA)
  Receive Date: 20210820
  Receipt Date: 20210820
  Transmission Date: 20211014
  Serious: Yes (Hospitalization, Other)
  Sender: FDA-Public Use
  Company Number: NVSC2021ZA184134

PATIENT
  Age: 42 Year
  Sex: Female

DRUGS (2)
  1. TUVIGIN [Suspect]
     Active Substance: FINGOLIMOD HYDROCHLORIDE
     Indication: RELAPSING-REMITTING MULTIPLE SCLEROSIS
     Dosage: 0.5 MG, QD
     Route: 048
     Dates: start: 20190726
  2. RIVOTRIL [Concomitant]
     Active Substance: CLONAZEPAM
     Indication: PRODUCT USED FOR UNKNOWN INDICATION
     Dosage: UNK
     Route: 065

REACTIONS (20)
  - Aspartate aminotransferase increased [Unknown]
  - Fall [Unknown]
  - Ataxia [Unknown]
  - COVID-19 [Unknown]
  - Liver function test increased [Unknown]
  - Pain [Unknown]
  - Protein total decreased [Unknown]
  - Blood alkaline phosphatase increased [Unknown]
  - Alanine aminotransferase increased [Unknown]
  - Lymphocyte count decreased [Unknown]
  - Fatigue [Unknown]
  - Muscular weakness [Unknown]
  - Vertigo [Unknown]
  - White blood cell count decreased [Unknown]
  - Expanded disability status scale score increased [Unknown]
  - Intervertebral disc disorder [Unknown]
  - Gamma-glutamyltransferase increased [Unknown]
  - Asthenia [Unknown]
  - Glomerular filtration rate decreased [Unknown]
  - Urinary incontinence [Unknown]

NARRATIVE: CASE EVENT DATE: 20200707
